FAERS Safety Report 10342523 (Version 2)
Quarter: 2014Q4

REPORT INFORMATION
  Report Type: Spontaneous
  Country: IT (occurrence: IT)
  Receive Date: 20140725
  Receipt Date: 20141103
  Transmission Date: 20150528
  Serious: Yes (Hospitalization)
  Sender: FDA-Public Use
  Company Number: PHHY2014IT088754

PATIENT
  Sex: Female

DRUGS (3)
  1. ALPRAZOLAM. [Suspect]
     Active Substance: ALPRAZOLAM
     Indication: SELF-INJURIOUS IDEATION
     Dosage: UNK
     Route: 048
     Dates: start: 20140405, end: 20140405
  2. PROTIADEN [Suspect]
     Active Substance: DOTHIEPIN HYDROCHLORIDE
     Indication: SELF-INJURIOUS IDEATION
     Route: 048
     Dates: start: 20140405, end: 20140405
  3. DIFMETRE [Suspect]
     Active Substance: CAFFEINE\INDOMETHACIN\PROCHLORPERAZINE MALEATE
     Indication: SELF-INJURIOUS IDEATION
     Dates: start: 20140405, end: 20140405

REACTIONS (2)
  - Drug abuse [Recovering/Resolving]
  - Sensory loss [Recovering/Resolving]

NARRATIVE: CASE EVENT DATE: 20140405
